FAERS Safety Report 9547137 (Version 3)
Quarter: 2014Q1

REPORT INFORMATION
  Report Type: Report from Study
  Country: FR (occurrence: FR)
  Receive Date: 20130924
  Receipt Date: 20140203
  Transmission Date: 20141002
  Serious: Yes (Hospitalization)
  Sender: FDA-Public Use
  Company Number: PHHY2013FR105702

PATIENT
  Age: 57 Year
  Sex: Female

DRUGS (4)
  1. MYCOPHENOLIC ACID [Suspect]
     Indication: PROPHYLAXIS AGAINST TRANSPLANT REJECTION
     Dosage: 1440 MG, DAILY
     Route: 048
     Dates: start: 20130609, end: 20130907
  2. MYCOPHENOLIC ACID [Suspect]
     Dosage: 720 MG, DAILY
     Route: 048
     Dates: start: 20130911
  3. MYCOPHENOLIC ACID [Suspect]
     Dosage: 360 MG DAILY
     Dates: start: 20131216
  4. BACTRIM [Suspect]
     Indication: ANTIFUNGAL PROPHYLAXIS
     Dosage: 400 MG, DAILY
     Dates: start: 20130609, end: 20130904

REACTIONS (2)
  - Aplasia [Recovered/Resolved]
  - Hyperthermia [Not Recovered/Not Resolved]
